FAERS Safety Report 6578636-1 (Version None)
Quarter: 2010Q1

REPORT INFORMATION
  Report Type: 
  Country: None (occurrence: None)
  Receive Date: 20100211
  Receipt Date: 20100203
  Transmission Date: 20100710
  Serious: Yes (Hospitalization)
  Sender: FDA-Public Use
  Company Number: PHHO2009TR12350

PATIENT
  Sex: Female
  Weight: 59 kg

DRUGS (3)
  1. AFINITOR [Suspect]
     Indication: METASTATIC RENAL CELL CARCINOMA
     Dosage: 10 MG, DAILY
     Route: 048
     Dates: start: 20090529, end: 20090928
  2. AFINITOR [Suspect]
     Dosage: 10 MG
     Route: 048
  3. BELOC ZOK [Concomitant]
     Indication: HYPERTENSION

REACTIONS (5)
  - ACUTE MYOCARDIAL INFARCTION [None]
  - ACUTE PULMONARY OEDEMA [None]
  - HYPERTENSIVE CRISIS [None]
  - TROPONIN T INCREASED [None]
  - VENTRICULAR HYPOKINESIA [None]
